FAERS Safety Report 9086826 (Version 1)
Quarter: 2013Q1

REPORT INFORMATION
  Report Type: Report from Study
  Country: US (occurrence: US)
  Receive Date: 20130131
  Receipt Date: 20130131
  Transmission Date: 20140127
  Serious: No
  Sender: FDA-Public Use
  Company Number: US-ABBOTT-12P-163-0945528-00

PATIENT
  Age: 51 None
  Sex: Female

DRUGS (6)
  1. HUMIRA [Suspect]
     Indication: RHEUMATOID ARTHRITIS
     Dates: start: 201206
  2. VIMOVO [Concomitant]
     Indication: PRODUCT USED FOR UNKNOWN INDICATION
     Dosage: 500MG/25MG
  3. PREDNISONE [Concomitant]
     Indication: PRODUCT USED FOR UNKNOWN INDICATION
  4. FOLIC ACID [Concomitant]
     Indication: PRODUCT USED FOR UNKNOWN INDICATION
  5. THYROXINE [Concomitant]
     Indication: HYPOTHYROIDISM
  6. SPIRONO-HCTZ [Concomitant]
     Indication: FLUID RETENTION
     Dosage: 25/25 TABLET BID

REACTIONS (5)
  - Fatigue [Recovering/Resolving]
  - Injection site pain [Recovering/Resolving]
  - Device malfunction [Recovering/Resolving]
  - Injection site bruising [Recovering/Resolving]
  - Drug dose omission [Recovering/Resolving]
